FAERS Safety Report 7929437 (Version 4)
Quarter: 2014Q1

REPORT INFORMATION
  Report Type: Spontaneous
  Country: US (occurrence: US)
  Receive Date: 20110504
  Receipt Date: 20140115
  Transmission Date: 20141002
  Serious: Yes (Hospitalization, Other)
  Sender: FDA-Public Use
  Company Number: US-BAYER-2011-037691

PATIENT
  Age: 31 Year
  Sex: Female
  Weight: 53.52 kg

DRUGS (2)
  1. YASMIN [Suspect]
     Dosage: UNK
     Dates: start: 2008, end: 2009
  2. OCELLA [Suspect]
     Dosage: UNK
     Dates: start: 2008, end: 2009

REACTIONS (9)
  - Cholecystitis chronic [None]
  - Organ failure [None]
  - General physical health deterioration [None]
  - Anhedonia [None]
  - Internal injury [None]
  - Injury [None]
  - Pain [None]
  - Anxiety [None]
  - Emotional distress [None]
